FAERS Safety Report 19894046 (Version 1)
Quarter: 2021Q3

REPORT INFORMATION
  Report Type: Spontaneous
  Country: US (occurrence: US)
  Receive Date: 20210928
  Receipt Date: 20210928
  Transmission Date: 20211014
  Serious: Yes (Other)
  Sender: FDA-Public Use
  Company Number: None

PATIENT
  Age: 79 Year
  Sex: Female

DRUGS (1)
  1. LYNPARZA [Suspect]
     Active Substance: OLAPARIB
     Dosage: ?          OTHER DOSE:150MG/300MG;OTHER FREQUENCY:QAM/QPM;?
     Route: 048
     Dates: start: 20210202

REACTIONS (2)
  - Abdominal pain upper [None]
  - Dyspepsia [None]
